FAERS Safety Report 7530187-3 (Version None)
Quarter: 2011Q2

REPORT INFORMATION
  Report Type: 
  Country: None (occurrence: None)
  Receive Date: 20110607
  Receipt Date: 20110530
  Transmission Date: 20111010
  Serious: Yes (Other)
  Sender: FDA-Public Use
  Company Number: PHHY2011TH46787

PATIENT
  Age: 64 Year
  Sex: Female

DRUGS (4)
  1. RITUXIMAB [Suspect]
     Indication: FOLLICLE CENTRE LYMPHOMA DIFFUSE SMALL CELL LYMPHOMA STAGE IV
     Dosage: UNK UKN, UNK
  2. VINCRISTINE [Suspect]
     Indication: FOLLICLE CENTRE LYMPHOMA DIFFUSE SMALL CELL LYMPHOMA STAGE IV
     Dosage: UNK UKN, UNK
  3. PREDNISOLONE [Suspect]
     Indication: FOLLICLE CENTRE LYMPHOMA DIFFUSE SMALL CELL LYMPHOMA STAGE IV
     Dosage: UNK UKN, UNK
  4. CYCLOPHOSPHAMIDE [Suspect]
     Indication: FOLLICLE CENTRE LYMPHOMA DIFFUSE SMALL CELL LYMPHOMA STAGE IV
     Dosage: UNK UKN, UNK

REACTIONS (14)
  - CYTOMEGALOVIRUS COLITIS [None]
  - PYREXIA [None]
  - ABNORMAL FAECES [None]
  - MUCOUS STOOLS [None]
  - HYPOCALCAEMIA [None]
  - LARGE INTESTINAL ULCER [None]
  - ILEAL ULCER [None]
  - WHITE BLOOD CELLS STOOL [None]
  - HYPOPHOSPHATAEMIA [None]
  - DIARRHOEA [None]
  - TETANY [None]
  - HYPONATRAEMIA [None]
  - HYPOKALAEMIA [None]
  - HYPOMAGNESAEMIA [None]
